FAERS Safety Report 8885478 (Version 2)
Quarter: 2012Q4

REPORT INFORMATION
  Report Type: 
  Country: US (occurrence: US)
  Receive Date: 20121101
  Receipt Date: 20121213
  Transmission Date: 20130627
  Serious: Yes (Death, Other)
  Sender: FDA-Public Use
  Company Number: US-PFIZER INC-2012270092

PATIENT
  Age: 73 Year
  Sex: Male

DRUGS (1)
  1. VFEND [Suspect]
     Dosage: 200 mg, 2x/day
     Dates: start: 20120425

REACTIONS (3)
  - Emphysema [Fatal]
  - Bronchitis chronic [Fatal]
  - Pneumonia [Unknown]
